FAERS Safety Report 9820237 (Version 1)
Quarter: 2013Q4

REPORT INFORMATION
  Report Type: Spontaneous
  Country: US (occurrence: None)
  Receive Date: 20131223
  Receipt Date: 20131223
  Transmission Date: 20140711
  Serious: No
  Sender: FDA-Public Use
  Company Number: 221172

PATIENT
  Sex: Female

DRUGS (4)
  1. PICATO [Suspect]
     Indication: ACTINIC KERATOSIS
     Dosage: 1 IN 1 D
     Route: 061
     Dates: start: 20130330, end: 20130330
  2. HORMONE REPLACEMENT (HORMONES NOS) [Concomitant]
  3. THYROID MEDICATION (THYROID PREPARATIONS) [Concomitant]
  4. PRAVASTATIN (PRAVASTATIN) [Concomitant]

REACTIONS (3)
  - Application site pain [None]
  - Application site pain [None]
  - Application site vesicles [None]
